FAERS Safety Report 7237261 (Version 4)
Quarter: 2017Q1

REPORT INFORMATION
  Report Type: Spontaneous
  Country: IT (occurrence: IT)
  Receive Date: 20100105
  Receipt Date: 20170202
  Transmission Date: 20170429
  Serious: Yes (Hospitalization, Other)
  Sender: FDA-Public Use
  Company Number: IT-PFIZER INC-2009296710

PATIENT
  Age: 74 Year
  Sex: Male

DRUGS (9)
  1. PANTORC [Suspect]
     Active Substance: PANTOPRAZOLE SODIUM
     Dosage: 40 MG, 1X/DAY
     Route: 048
     Dates: start: 20090803, end: 20090825
  2. KANRENOL [Suspect]
     Active Substance: CANRENOATE POTASSIUM
     Indication: CARDIAC DISORDER
     Dosage: 25 MG, 1X/DAY
     Route: 048
     Dates: start: 20090803, end: 20090825
  3. TAREG [Suspect]
     Active Substance: VALSARTAN
     Indication: CARDIAC DISORDER
     Dosage: 40 MG, 1X/DAY
     Route: 048
     Dates: start: 20090803, end: 20090825
  4. TORVAST [Suspect]
     Active Substance: ATORVASTATIN
     Indication: CARDIAC DISORDER
     Dosage: 40 MG, 1X/DAY
     Route: 048
     Dates: start: 20090803, end: 20090825
  5. METOPROLOL. [Suspect]
     Active Substance: METOPROLOL
     Indication: CARDIAC DISORDER
     Dosage: 300 MG, 1X/DAY
     Route: 048
     Dates: start: 20090803, end: 20090825
  6. ASCRIPTIN [Suspect]
     Active Substance: ASPIRIN
     Indication: CARDIAC DISORDER
     Dosage: 150 MG, 1X/DAY
     Route: 048
     Dates: start: 20090803, end: 20090825
  7. POTASSIUM CANRENOATE [Suspect]
     Active Substance: CANRENOATE POTASSIUM
     Indication: CARDIAC DISORDER
     Dosage: 50 MG, 1X/DAY
     Route: 048
     Dates: start: 20090803, end: 20090825
  8. PLAVIX [Suspect]
     Active Substance: CLOPIDOGREL BISULFATE
     Indication: CARDIOVASCULAR DISORDER
     Dosage: 75 MG, 1X/DAY
     Route: 048
     Dates: start: 20090803, end: 20090825
  9. KANRENOL [Suspect]
     Active Substance: CANRENOATE POTASSIUM
     Indication: CARDIAC DISORDER
     Dosage: 50 MG, UNK
     Route: 048
     Dates: start: 20090803, end: 20090825

REACTIONS (1)
  - Dermatitis exfoliative generalised [Unknown]

NARRATIVE: CASE EVENT DATE: 20090825
